FAERS Safety Report 7731976-2 (Version None)
Quarter: 2011Q3

REPORT INFORMATION
  Report Type: 
  Country: None (occurrence: None)
  Receive Date: 20110906
  Receipt Date: 20110825
  Transmission Date: 20111222
  Serious: Yes (Hospitalization, Other)
  Sender: FDA-Public Use
  Company Number: MX-SANOFI-AVENTIS-2011SA054916

PATIENT
  Age: 47 Year
  Sex: Female
  Weight: 61 kg

DRUGS (3)
  1. DRONEDARONE HCL [Suspect]
     Indication: ATRIAL FIBRILLATION
     Route: 048
     Dates: start: 20110501
  2. PLAVIX [Suspect]
     Indication: THROMBOSIS PROPHYLAXIS
     Route: 048
     Dates: start: 20081001
  3. PLAVIX [Suspect]
     Route: 048
     Dates: start: 20081001

REACTIONS (5)
  - ATRIAL FIBRILLATION [None]
  - DIARRHOEA [None]
  - VISION BLURRED [None]
  - OVARIAN NEOPLASM [None]
  - DIZZINESS [None]
